FAERS Safety Report 16717064 (Version 1)
Quarter: 2019Q3

REPORT INFORMATION
  Report Type: Spontaneous
  Country: AU (occurrence: AU)
  Receive Date: 20190819
  Receipt Date: 20190819
  Transmission Date: 20191005
  Serious: Yes (Other)
  Sender: FDA-Public Use
  Company Number: AU-ELI_LILLY_AND_COMPANY-AU201908007427

PATIENT
  Age: 32 Year
  Sex: Male

DRUGS (2)
  1. ERBITUX [Suspect]
     Active Substance: CETUXIMAB
     Indication: RECTAL CANCER METASTATIC
     Dosage: UNK UNK, 2/M
     Route: 065
     Dates: start: 201809, end: 201907
  2. IRINOTECAN [Concomitant]
     Active Substance: IRINOTECAN
     Indication: RECTAL CANCER METASTATIC
     Dosage: UNK
     Dates: start: 201709, end: 201907

REACTIONS (2)
  - Carcinoembryonic antigen increased [Unknown]
  - Off label use [Unknown]

NARRATIVE: CASE EVENT DATE: 201907
